FAERS Safety Report 10866116 (Version 1)
Quarter: 2015Q1

REPORT INFORMATION
  Report Type: Spontaneous
  Country: US (occurrence: None)
  Receive Date: 20150219
  Receipt Date: 20150219
  Transmission Date: 20150721
  Serious: Yes (Disabling, Other)
  Sender: FDA-Public Use
  Company Number: None

PATIENT
  Age: 70 Year
  Sex: Female
  Weight: 62.6 kg

DRUGS (13)
  1. OMEPRAZOLE. [Concomitant]
     Active Substance: OMEPRAZOLE
  2. METFORMIN [Concomitant]
     Active Substance: METFORMIN HYDROCHLORIDE
  3. GALANTAMINE [Suspect]
     Active Substance: GALANTAMINE
     Indication: DEMENTIA ALZHEIMER^S TYPE
     Dosage: STRENGTH: 4MG, 1 PILL, FREQUENCY: DAILY WITH FOOD, BY MOUTH
     Route: 048
     Dates: start: 20150109, end: 20150109
  4. MULTIVITAMINES [Concomitant]
     Active Substance: VITAMINS
  5. AMLODIPINE [Concomitant]
     Active Substance: AMLODIPINE BESYLATE
  6. LOVASN [Concomitant]
  7. DULOXETINE [Concomitant]
     Active Substance: DULOXETINE
  8. LISINOPRIL. [Concomitant]
     Active Substance: LISINOPRIL
  9. IPRATROPIUM BROMIDE NASAL SPRAY [Concomitant]
  10. METROPOLOL [Concomitant]
     Active Substance: METOPROLOL
  11. ATORVASTATIN [Concomitant]
     Active Substance: ATORVASTATIN
  12. VITAMIN E [Concomitant]
     Active Substance: .ALPHA.-TOCOPHEROL
  13. OMEGA 3 [Concomitant]
     Active Substance: OMEGA-3 FATTY ACIDS

REACTIONS (3)
  - Palpitations [None]
  - Heart rate increased [None]
  - Blood pressure increased [None]

NARRATIVE: CASE EVENT DATE: 20150108
